FAERS Safety Report 19442616 (Version 1)
Quarter: 2021Q2

REPORT INFORMATION
  Report Type: Spontaneous
  Country: US (occurrence: US)
  Receive Date: 20210618
  Receipt Date: 20210618
  Transmission Date: 20210717
  Serious: Yes (Hospitalization)
  Sender: FDA-Public Use
  Company Number: None

PATIENT
  Age: 70 Year
  Sex: Male

DRUGS (10)
  1. LISINOPRIL. [Concomitant]
     Active Substance: LISINOPRIL
  2. FLUTICASONE. [Concomitant]
     Active Substance: FLUTICASONE
  3. PROBENECID. [Concomitant]
     Active Substance: PROBENECID
  4. LANSOPRAZOLE. [Concomitant]
     Active Substance: LANSOPRAZOLE
  5. PANTOPRAZOLE [Concomitant]
     Active Substance: PANTOPRAZOLE
  6. SPIRONOLACT [Concomitant]
     Active Substance: SPIRONOLACTONE
  7. FUROSEMIDE. [Concomitant]
     Active Substance: FUROSEMIDE
  8. REPATHA [Suspect]
     Active Substance: EVOLOCUMAB
     Indication: ABNORMAL CLOTTING FACTOR
     Dosage: ?          OTHER FREQUENCY:Q2W ;?
     Route: 058
     Dates: start: 20210127
  9. CLOPIDOGREL [Concomitant]
     Active Substance: CLOPIDOGREL BISULFATE
  10. WARFARIN [Concomitant]
     Active Substance: WARFARIN

REACTIONS (2)
  - Myocardial infarction [None]
  - Therapy interrupted [None]

NARRATIVE: CASE EVENT DATE: 20210607
